FAERS Safety Report 13014755 (Version 1)
Quarter: 2016Q4

REPORT INFORMATION
  Report Type: Report from Study
  Country: FR (occurrence: FR)
  Receive Date: 20161209
  Receipt Date: 20161209
  Transmission Date: 20170207
  Serious: Yes (Hospitalization, Other)
  Sender: FDA-Public Use
  Company Number: FR-BRISTOL-MYERS SQUIBB COMPANY-BMS-2016-102118

PATIENT
  Age: 51 Year
  Sex: Male
  Weight: 65.5 kg

DRUGS (6)
  1. ABILIFY [Concomitant]
     Active Substance: ARIPIPRAZOLE
     Indication: BIPOLAR DISORDER
     Dosage: 10 MG, BID
     Route: 065
     Dates: start: 2009, end: 201606
  2. DEPAKINE                           /00228501/ [Concomitant]
     Active Substance: VALPROIC ACID
     Indication: EPILEPSY
     Dosage: 500 MG, QD
     Route: 065
     Dates: start: 20151221
  3. DACLATASVIR DIHYDROCHLORIDE [Suspect]
     Active Substance: DACLATASVIR DIHYDROCHLORIDE
     Indication: HEPATITIS C
     Dosage: UNK, QD
     Route: 065
     Dates: start: 20150324, end: 20151217
  4. SOFOSBUVIR [Suspect]
     Active Substance: SOFOSBUVIR
     Indication: HEPATITIS C
     Dosage: UNK
     Route: 065
     Dates: start: 20150324, end: 20151217
  5. TERALITHE [Concomitant]
     Active Substance: LITHIUM CARBONATE
     Indication: BIPOLAR DISORDER
     Dosage: 250 MG, UNK
     Route: 065
  6. SOLIAN [Concomitant]
     Active Substance: AMISULPRIDE
     Indication: BIPOLAR DISORDER
     Dosage: 100 MG, BID
     Route: 065
     Dates: start: 2009

REACTIONS (3)
  - Nausea [Unknown]
  - Abdominal pain [Unknown]
  - Epilepsy [Unknown]

NARRATIVE: CASE EVENT DATE: 20160108
